FAERS Safety Report 16850976 (Version 1)
Quarter: 2019Q3

REPORT INFORMATION
  Report Type: Spontaneous
  Country: AT (occurrence: AT)
  Receive Date: 20190925
  Receipt Date: 20190925
  Transmission Date: 20191005
  Serious: Yes (Other)
  Sender: FDA-Public Use
  Company Number: AT-PFIZER INC-2019407546

PATIENT
  Age: 71 Year
  Sex: Female

DRUGS (6)
  1. CYTARABINE. [Concomitant]
     Active Substance: CYTARABINE
     Indication: ACUTE MYELOID LEUKAEMIA RECURRENT
     Dosage: UNK (1ST 3+7+MYLOTARG INDUCTION)
     Dates: start: 201811
  2. MYLOTARG [Suspect]
     Active Substance: GEMTUZUMAB OZOGAMICIN
     Indication: ACUTE MYELOID LEUKAEMIA RECURRENT
     Dosage: UNK (FIRST 3+7+MYLOTARG INDUCTION)
     Dates: start: 201811
  3. CYTARABINE. [Concomitant]
     Active Substance: CYTARABINE
     Dosage: UNK (SECOND 3+7+MYLOTARG INDUCTION)
     Dates: start: 201902
  4. DAUNORUBICIN [Concomitant]
     Active Substance: DAUNORUBICIN
     Indication: ACUTE MYELOID LEUKAEMIA RECURRENT
     Dosage: 1ST 3+7+MYLOTARG INDUCTION
     Dates: start: 201811
  5. MYLOTARG [Suspect]
     Active Substance: GEMTUZUMAB OZOGAMICIN
     Dosage: UNK (SECOND 3+7+MYLOTARG INDUCTION)
     Dates: start: 201902
  6. DAUNORUBICIN [Concomitant]
     Active Substance: DAUNORUBICIN
     Dosage: 2ND 3+7+MYLOTARG INDUCTIONUNK
     Dates: start: 201902

REACTIONS (3)
  - Retinal haemorrhage [Unknown]
  - Off label use [Unknown]
  - Product use issue [Unknown]

NARRATIVE: CASE EVENT DATE: 201902
